FAERS Safety Report 25520490 (Version 2)
Quarter: 2025Q4

REPORT INFORMATION
  Report Type: Spontaneous
  Country: EU (occurrence: EU)
  Receive Date: 20250704
  Receipt Date: 20251002
  Transmission Date: 20260118
  Serious: Yes (Hospitalization)
  Sender: PFIZER
  Company Number: EU-ROCHE-10000311525

PATIENT
  Age: 46 Year
  Sex: Female
  Weight: 64 kg

DRUGS (10)
  1. DOXORUBICIN HYDROCHLORIDE [Suspect]
     Active Substance: DOXORUBICIN HYDROCHLORIDE
     Indication: Triple negative breast cancer
     Dosage: UNK
     Route: 042
     Dates: start: 20250124
  2. DOXORUBICIN HYDROCHLORIDE [Suspect]
     Active Substance: DOXORUBICIN HYDROCHLORIDE
     Dosage: 110 MG
     Route: 042
     Dates: end: 20250328
  3. CARBOPLATIN [Suspect]
     Active Substance: CARBOPLATIN
     Indication: Triple negative breast cancer
     Dosage: ON DAY 1
     Route: 042
     Dates: start: 20241025
  4. CARBOPLATIN [Suspect]
     Active Substance: CARBOPLATIN
     Dosage: ON DAY 1
     Route: 042
     Dates: start: 20241227
  5. ATEZOLIZUMAB [Suspect]
     Active Substance: ATEZOLIZUMAB
     Indication: Triple negative breast cancer
     Dosage: LAST DOSE ON 16/MAY/2025
     Route: 042
     Dates: start: 20241025, end: 20250516
  6. TIRAGOLUMAB [Suspect]
     Active Substance: TIRAGOLUMAB
     Indication: Triple negative breast cancer
     Dosage: LAST DOSE ON 16/MAY/2025
     Route: 042
     Dates: start: 20241025, end: 20250516
  7. CYCLOPHOSPHAMIDE [Suspect]
     Active Substance: CYCLOPHOSPHAMIDE
     Indication: Triple negative breast cancer
     Dosage: UNK
     Route: 042
     Dates: start: 20250124
  8. CYCLOPHOSPHAMIDE [Suspect]
     Active Substance: CYCLOPHOSPHAMIDE
     Dosage: 1098 MG
     Route: 042
     Dates: end: 20250328
  9. PACLITAXEL [Suspect]
     Active Substance: PACLITAXEL
     Indication: Triple negative breast cancer
     Dosage: ON DAYS 1, 8, AND 15
     Route: 042
     Dates: start: 20241025
  10. PACLITAXEL [Suspect]
     Active Substance: PACLITAXEL
     Dosage: ON DAYS 1, 8, AND 15
     Route: 042
     Dates: start: 20241227

REACTIONS (1)
  - Myocarditis [Recovered/Resolved]

NARRATIVE: CASE EVENT DATE: 20250606
